FAERS Safety Report 5423743-X (Version None)
Quarter: 2007Q3

REPORT INFORMATION
  Report Type: 
  Country: None (occurrence: None)
  Receive Date: 20070823
  Receipt Date: 20070816
  Transmission Date: 20080115
  Serious: Yes (Hospitalization)
  Sender: FDA-Public Use
  Company Number: NO-JNJFOC-20070803483

PATIENT
  Age: 70 Year
  Sex: Female

DRUGS (1)
  1. CAELYX [Suspect]
     Indication: BREAST CANCER
     Dosage: MAR/APR 2007, FIRST INFUSION
     Route: 042

REACTIONS (4)
  - CHEST PAIN [None]
  - COLD SWEAT [None]
  - INFUSION RELATED REACTION [None]
  - NAUSEA [None]
